FAERS Safety Report 10687295 (Version 1)
Quarter: 2014Q4

REPORT INFORMATION
  Report Type: Spontaneous
  Country: None (occurrence: None)
  Receive Date: 20141230
  Receipt Date: 20141230
  Transmission Date: 20150529
  Serious: Yes (Hospitalization, Other)
  Sender: FDA-Public Use
  Company Number: None

PATIENT
  Age: 15 Year
  Sex: Female
  Weight: 73.48 kg

DRUGS (1)
  1. LUPRON [Suspect]
     Active Substance: LEUPROLIDE ACETATE
     Indication: GENDER IDENTITY DISORDER
     Dosage: 30 MG, EVERY 3 MONTHS
     Route: 030
     Dates: start: 20141218

REACTIONS (1)
  - Abscess sterile [None]

NARRATIVE: CASE EVENT DATE: 20141225
